FAERS Safety Report 19732373 (Version 1)
Quarter: 2021Q3

REPORT INFORMATION
  Report Type: Spontaneous
  Country: FR (occurrence: FR)
  Receive Date: 20210822
  Receipt Date: 20210822
  Transmission Date: 20211014
  Serious: Yes (Life-Threatening, Hospitalization)
  Sender: FDA-Public Use
  Company Number: FR-TEVA-2021-FR-1942948

PATIENT
  Age: 12 Year
  Sex: Female
  Weight: 35 kg

DRUGS (12)
  1. ETOPOSIDE. [Suspect]
     Active Substance: ETOPOSIDE
     Indication: EWING^S SARCOMA
     Dosage: 110MG
     Route: 042
     Dates: start: 20210211, end: 20210706
  2. DOXORUBICINE [Suspect]
     Active Substance: DOXORUBICIN
     Indication: EWING^S SARCOMA
     Dosage: 123MG
     Route: 042
     Dates: start: 20210127, end: 20210527
  3. ZOPHREN [Concomitant]
     Active Substance: ONDANSETRON
     Dosage: THERAPY START DATE ASKU, UNKNOWN
     Route: 048
  4. VINCRISTINE (SULFATE DE) [Suspect]
     Active Substance: VINCRISTINE SULFATE
     Indication: EWING^S SARCOMA
     Dosage: 6MG
     Route: 042
     Dates: start: 20210127, end: 20210726
  5. PRIMPERAN [Suspect]
     Active Substance: METOCLOPRAMIDE HYDROCHLORIDE
     Indication: NAUSEA
     Dosage: 15MG
     Route: 048
     Dates: start: 20210726, end: 20210726
  6. INEXIUM [Concomitant]
     Active Substance: ESOMEPRAZOLE
     Dosage: THERAPY START DATE ASKU, UNKNOWN
     Route: 048
  7. EMEND 80 MG, GELULE [Suspect]
     Active Substance: APREPITANT
     Indication: NAUSEA
     Dosage: 1DF
     Route: 048
     Dates: start: 20210726, end: 20210726
  8. GLUCONATE DE POTASSIUM [Concomitant]
     Active Substance: POTASSIUM GLUCONATE
     Dosage: THERAPY START DATE ASKU, UNKNOWN
     Route: 048
  9. ENDOXAN [Suspect]
     Active Substance: CYCLOPHOSPHAMIDE
     Indication: EWING^S SARCOMA
     Dosage: 1310MG
     Route: 042
     Dates: start: 20210127, end: 20210726
  10. BACTRIM [Concomitant]
     Active Substance: SULFAMETHOXAZOLE\TRIMETHOPRIM
     Dosage: THERAPY START DATE ASKU, UNKNOWN
     Route: 048
  11. IFOSFAMIDE. [Suspect]
     Active Substance: IFOSFAMIDE
     Indication: EWING^S SARCOMA
     Dosage: 1960MG
     Route: 042
     Dates: start: 20210211, end: 20210706
  12. FORLAX [Concomitant]
     Active Substance: POLYETHYLENE GLYCOL 4000
     Dosage: THERAPY START DATE ASKU, UNKNOWN
     Route: 048

REACTIONS (2)
  - Cardiac failure acute [Recovering/Resolving]
  - Congestive cardiomyopathy [Not Recovered/Not Resolved]

NARRATIVE: CASE EVENT DATE: 20210726
